FAERS Safety Report 25746304 (Version 1)
Quarter: 2025Q3

REPORT INFORMATION
  Report Type: Report from Study
  Country: JP (occurrence: JP)
  Receive Date: 20250901
  Receipt Date: 20250901
  Transmission Date: 20251021
  Serious: Yes (Other)
  Sender: ALEXION PHARMACEUTICALS
  Company Number: JP-ASTRAZENECA-230014756_011820_P_1

PATIENT
  Age: 16 Year
  Sex: Female
  Weight: 32.45 kg

DRUGS (3)
  1. KOSELUGO [Suspect]
     Active Substance: SELUMETINIB
     Indication: Neurofibromatosis
     Dosage: 30 MILLIGRAM, BID
     Dates: start: 20221228, end: 20230220
  2. KOSELUGO [Suspect]
     Active Substance: SELUMETINIB
     Dosage: 50 MILLIGRAM, QD
     Dates: start: 20230320
  3. KOSELUGO [Suspect]
     Active Substance: SELUMETINIB
     Dosage: 45 MILLIGRAM, BID

REACTIONS (5)
  - Anaemia [Recovered/Resolved]
  - Neurofibromatosis [Not Recovered/Not Resolved]
  - Cytopenia [Recovered/Resolved]
  - Neurofibrosarcoma [Unknown]
  - Retroperitoneal mass [Unknown]

NARRATIVE: CASE EVENT DATE: 20230220
